FAERS Safety Report 20687656 (Version 1)
Quarter: 2022Q2

REPORT INFORMATION
  Report Type: Spontaneous
  Country: US (occurrence: US)
  Receive Date: 20220408
  Receipt Date: 20220408
  Transmission Date: 20220721
  Serious: No
  Sender: FDA-Public Use
  Company Number: US-JNJFOC-20220405225

PATIENT
  Age: 79 Year
  Sex: Male

DRUGS (1)
  1. ZYTIGA [Suspect]
     Active Substance: ABIRATERONE ACETATE
     Indication: Product used for unknown indication
     Dosage: : 250MG -TAKE 4TABLETS BY MOUTH ONCE DAILY
     Route: 048
     Dates: start: 20220201

REACTIONS (1)
  - Prostatic specific antigen increased [Unknown]
